FAERS Safety Report 25221047 (Version 2)
Quarter: 2025Q4

REPORT INFORMATION
  Report Type: Report from Study
  Country: CA (occurrence: CA)
  Receive Date: 20250421
  Receipt Date: 20251222
  Transmission Date: 20260117
  Serious: Yes (Other)
  Sender: JOHNSON AND JOHNSON
  Company Number: CA-JNJFOC-20240468992

PATIENT
  Age: 63 Year
  Sex: Male

DRUGS (3)
  1. TREMFYA [Suspect]
     Active Substance: GUSELKUMAB
     Indication: Psoriasis
     Dosage: LAST DOSE ON 10-MAR-2024.
     Dates: start: 20180221, end: 20250401
  2. TREMFYA [Suspect]
     Active Substance: GUSELKUMAB
     Dates: start: 20180221, end: 20251027
  3. TREMFYA [Suspect]
     Active Substance: GUSELKUMAB

REACTIONS (3)
  - Hepatic cirrhosis [Unknown]
  - Cholelithiasis [Unknown]
  - Cellulitis [Unknown]

NARRATIVE: CASE EVENT DATE: 20240207
